FAERS Safety Report 14122423 (Version 1)
Quarter: 2017Q4

REPORT INFORMATION
  Report Type: Spontaneous
  Country: US (occurrence: US)
  Receive Date: 20171024
  Receipt Date: 20171024
  Transmission Date: 20180321
  Serious: No
  Sender: FDA-Public Use
  Company Number: US-009507513-1710USA000576

PATIENT
  Age: 79 Year
  Sex: Male

DRUGS (1)
  1. PRIMAXIN IV [Suspect]
     Active Substance: CILASTATIN SODIUM\IMIPENEM
     Indication: URINARY TRACT INFECTION
     Dosage: 200 MG, Q6H
     Route: 042
     Dates: start: 2017

REACTIONS (1)
  - Creatinine renal clearance [Unknown]

NARRATIVE: CASE EVENT DATE: 2017
